FAERS Safety Report 5801370-X (Version None)
Quarter: 2008Q3

REPORT INFORMATION
  Report Type: 
  Country: None (occurrence: None)
  Receive Date: 20080703
  Receipt Date: 20080703
  Transmission Date: 20090109
  Serious: Yes (Hospitalization, Disabling)
  Sender: FDA-Public Use
  Company Number: None

PATIENT
  Age: 58 Year
  Sex: Male
  Weight: 104.3273 kg

DRUGS (2)
  1. RAPAMUNE [Suspect]
     Indication: HEADACHE
     Dosage: 2 MG 1X  DROPPED TO 1/2 MG 1X MAY /08
     Dates: start: 20071220, end: 20080501
  2. PROGRAF [Concomitant]

REACTIONS (5)
  - CARDIAC DISORDER [None]
  - CEREBROVASCULAR ACCIDENT [None]
  - CONVULSION [None]
  - DRUG TOXICITY [None]
  - TREMOR [None]
